FAERS Safety Report 7787800-5 (Version None)
Quarter: 2011Q3

REPORT INFORMATION
  Report Type: 
  Country: None (occurrence: None)
  Receive Date: 20110930
  Receipt Date: 20110922
  Transmission Date: 20111222
  Serious: Yes (Hospitalization, Other)
  Sender: FDA-Public Use
  Company Number: DE-AMGEN-DEUSP2011049422

PATIENT
  Age: 8 Year
  Sex: Female
  Weight: 32 kg

DRUGS (1)
  1. ENBREL [Suspect]
     Indication: JUVENILE ARTHRITIS
     Dosage: 25 MG, UNK
     Route: 058
     Dates: end: 20110812

REACTIONS (5)
  - BALANCE DISORDER [None]
  - INJECTION SITE PAIN [None]
  - DIZZINESS [None]
  - MALAISE [None]
  - VISUAL IMPAIRMENT [None]
